FAERS Safety Report 20292173 (Version 1)
Quarter: 2022Q1

REPORT INFORMATION
  Report Type: Spontaneous
  Country: US (occurrence: None)
  Receive Date: 20220104
  Receipt Date: 20220104
  Transmission Date: 20220423
  Serious: No
  Sender: FDA-Public Use
  Company Number: None

PATIENT
  Age: 83 Year
  Sex: Female
  Weight: 53 kg

DRUGS (11)
  1. PROMACTA [Suspect]
     Active Substance: ELTROMBOPAG OLAMINE
     Indication: Immune thrombocytopenia
     Dosage: FREQUENCY : DAILY;?
     Route: 048
     Dates: start: 20211213
  2. CALCIUM [Concomitant]
  3. ESCITALOPRAM [Concomitant]
  4. LOSARTAN [Concomitant]
     Active Substance: LOSARTAN
  5. ATORVASTATIN [Concomitant]
  6. Sulfamethoxazole-Trimethoprim [Concomitant]
  7. FOLIC ACID [Concomitant]
  8. BIOTIN [Concomitant]
  9. TRAZODONE [Concomitant]
  10. FISH OIL [Concomitant]
  11. MINERALS\VITAMINS [Concomitant]
     Active Substance: MINERALS\VITAMINS

REACTIONS (2)
  - Fatigue [None]
  - Nausea [None]

NARRATIVE: CASE EVENT DATE: 20220104
